FAERS Safety Report 5645424-X (Version None)
Quarter: 2008Q1

REPORT INFORMATION
  Report Type: 
  Country: None (occurrence: None)
  Receive Date: 20080229
  Receipt Date: 20070123
  Transmission Date: 20080703
  Serious: No
  Sender: FDA-Public Use
  Company Number: US-BRISTOL-MYERS SQUIBB COMPANY-13653597

PATIENT
  Sex: Female

DRUGS (3)
  1. TAXOL [Suspect]
     Route: 042
  2. DEXAMETHASONE TAB [Concomitant]
  3. DIPHENHYDRAMINE HCL [Concomitant]
     Route: 042

REACTIONS (2)
  - NAUSEA [None]
  - TREMOR [None]
